FAERS Safety Report 7065079-X (Version None)
Quarter: 2010Q4

REPORT INFORMATION
  Report Type: 
  Country: None (occurrence: None)
  Receive Date: 20101022
  Receipt Date: 20101022
  Transmission Date: 20110411
  Serious: Yes (Other)
  Sender: FDA-Public Use
  Company Number: None

PATIENT
  Sex: Male
  Weight: 88.905 kg

DRUGS (1)
  1. TERBINAFINE HCL [Suspect]
     Indication: TINEA PEDIS
     Dosage: 250 MG PER DAY DAILY
     Dates: start: 20100626, end: 20100724

REACTIONS (1)
  - DYSGEUSIA [None]
